FAERS Safety Report 21494160 (Version 1)
Quarter: 2022Q4

REPORT INFORMATION
  Report Type: Spontaneous
  Country: US (occurrence: None)
  Receive Date: 20221021
  Receipt Date: 20221021
  Transmission Date: 20230113
  Serious: Yes (Disabling, Other)
  Sender: FDA-Public Use
  Company Number: None

PATIENT
  Age: 20 Year
  Sex: Female
  Weight: 72 kg

DRUGS (1)
  1. LANTUS [Suspect]
     Active Substance: INSULIN GLARGINE
     Indication: Gestational diabetes
     Dosage: FREQUENCY : AT BEDTIME;?
     Route: 058
     Dates: start: 20140417, end: 20140710

REACTIONS (7)
  - Exposure during pregnancy [None]
  - Maternal drugs affecting foetus [None]
  - Maternal condition affecting foetus [None]
  - Product prescribing issue [None]
  - Product use issue [None]
  - Ill-defined disorder [None]
  - Neurological symptom [None]

NARRATIVE: CASE EVENT DATE: 20140523
